FAERS Safety Report 4830542-6 (Version None)
Quarter: 2005Q4

REPORT INFORMATION
  Report Type: 
  Country: None (occurrence: None)
  Receive Date: 20051115
  Receipt Date: 20051101
  Transmission Date: 20060501
  Serious: Yes (Death)
  Sender: FDA-Public Use
  Company Number: 2005-00185

PATIENT
  Age: 74 Year
  Sex: Male
  Weight: 73.5 kg

DRUGS (4)
  1. VELCADE [Suspect]
     Indication: MULTIPLE MYELOMA
     Dosage: 1.84 MG, 2/WEEK, IV BOLUS
     Route: 040
     Dates: start: 20041207, end: 20050106
  2. ANZEMET (DOLASETRON MESILATE) [Concomitant]
  3. BENADRYL ^PFIZER WARNER-LAMBERT^ (DIPHENHYDRAMINE HYDROCHLORIDE) [Concomitant]
  4. DECADRON [Concomitant]

REACTIONS (1)
  - CARDIAC FAILURE CONGESTIVE [None]
